FAERS Safety Report 18101640 (Version 2)
Quarter: 2020Q3

REPORT INFORMATION
  Report Type: Report from Study
  Country: PK (occurrence: PK)
  Receive Date: 20200801
  Receipt Date: 20200819
  Transmission Date: 20201103
  Serious: Yes (Other)
  Sender: FDA-Public Use
  Company Number: NVSC2020PK214107

PATIENT
  Age: 11 Year
  Sex: Male

DRUGS (2)
  1. ASUNRA [Suspect]
     Active Substance: DEFERASIROX
     Indication: THALASSAEMIA BETA
     Dosage: 400 MG, QD
     Route: 048
     Dates: start: 20190626
  2. ASUNRA [Suspect]
     Active Substance: DEFERASIROX
     Dosage: 400 MG, BID
     Route: 048

REACTIONS (2)
  - Serum ferritin increased [Not Recovered/Not Resolved]
  - Product dose omission issue [Unknown]

NARRATIVE: CASE EVENT DATE: 20200727
